FAERS Safety Report 12675207 (Version 2)
Quarter: 2016Q4

REPORT INFORMATION
  Report Type: Spontaneous
  Country: JP (occurrence: JP)
  Receive Date: 20160822
  Receipt Date: 20161121
  Transmission Date: 20170207
  Serious: No
  Sender: FDA-Public Use
  Company Number: JP-BAUSCH-BL-2016-020010

PATIENT
  Age: 70 Year
  Sex: Male
  Weight: 70.6 kg

DRUGS (6)
  1. LANSOPRAZOLE. [Concomitant]
     Active Substance: LANSOPRAZOLE
     Indication: PRODUCT USED FOR UNKNOWN INDICATION
  2. TARGRETIN [Suspect]
     Active Substance: BEXAROTENE
     Dosage: 5 CAPSULES A DAY
     Route: 048
     Dates: start: 20160721, end: 20160727
  3. TOPSYM [Concomitant]
     Indication: PRODUCT USED FOR UNKNOWN INDICATION
  4. TARGRETIN [Suspect]
     Active Substance: BEXAROTENE
     Indication: MYCOSIS FUNGOIDES
     Dosage: 7 CAPSULES A DAY
     Route: 048
     Dates: start: 20160627, end: 20160720
  5. TARGRETIN [Suspect]
     Active Substance: BEXAROTENE
     Dosage: 2 CAPSULES A DAY
     Route: 048
     Dates: start: 20160728
  6. CELECOX [Concomitant]
     Active Substance: CELECOXIB
     Indication: PRODUCT USED FOR UNKNOWN INDICATION

REACTIONS (3)
  - Dyslipidaemia [Unknown]
  - Hyperuricaemia [Unknown]
  - Hypothyroidism [Unknown]

NARRATIVE: CASE EVENT DATE: 20160704
